FAERS Safety Report 15736057 (Version 3)
Quarter: 2018Q4

REPORT INFORMATION
  Report Type: Report from Study
  Country: CN (occurrence: CN)
  Receive Date: 20181218
  Receipt Date: 20181231
  Transmission Date: 20190205
  Serious: Yes (Hospitalization)
  Sender: FDA-Public Use
  Company Number: CN-AMGEN-CHNCT2018179867

PATIENT
  Age: 37 Year
  Sex: Female
  Weight: 54.5 kg

DRUGS (13)
  1. ORNIDAZOLE W/SODIUM CHLORIDE [Concomitant]
     Dosage: 0.25 G, UNK
     Route: 042
     Dates: start: 20181009, end: 20181012
  2. LOW MOLECULAR WEIGHT HEPARIN SODIUM [Concomitant]
     Active Substance: HEPARIN SODIUM
     Dosage: 1666.7-2500 IU, UNK
     Route: 042
     Dates: start: 20180903, end: 20181126
  3. KETOROLAC TROMETHAMINE. [Concomitant]
     Active Substance: KETOROLAC TROMETHAMINE
     Dosage: 100 ML, UNK
     Route: 042
     Dates: start: 20181008, end: 20181008
  4. MUCOPOLYSACCHARIDES [Concomitant]
     Active Substance: GLYCOSAMINOGLYCANS
     Dosage: 14 G, UNK
     Route: 062
     Dates: start: 20181017
  5. HEPARIN SODIUM. [Concomitant]
     Active Substance: HEPARIN SODIUM
     Dosage: 20.5-25.5 MG, UNK
     Route: 042
     Dates: start: 20181128, end: 20181217
  6. CINACALCET HCL [Suspect]
     Active Substance: CINACALCET HYDROCHLORIDE
     Indication: HYPERPARATHYROIDISM SECONDARY
     Dosage: UNK
     Route: 065
     Dates: start: 20180917
  7. CEFODIZIME SODIUM [Concomitant]
     Active Substance: CEFODIZIME SODIUM
     Dosage: 100 ML, UNK
     Route: 042
     Dates: start: 20181008, end: 20181018
  8. ERYTHROPOIETIN HUMAN [Concomitant]
     Active Substance: ERYTHROPOIETIN
     Dosage: 6000 IU, UNK
     Route: 058
     Dates: start: 20180903
  9. RIBONUCLEIC ACID [Concomitant]
     Active Substance: RIBONUCLEIC ACID
     Dosage: 100 ML, UNK
     Route: 042
     Dates: start: 20181008, end: 20181008
  10. CINACALCET HCL [Suspect]
     Active Substance: CINACALCET HYDROCHLORIDE
     Dosage: UNK
     Route: 065
     Dates: start: 20181222
  11. CEFUROXIME SODIUM. [Concomitant]
     Active Substance: CEFUROXIME SODIUM
     Dosage: 100 ML, UNK
     Route: 042
     Dates: start: 20181009, end: 20181010
  12. SODIUM CHLORIDE. [Concomitant]
     Active Substance: SODIUM CHLORIDE
     Dosage: 100 ML, UNK
     Route: 042
     Dates: start: 20181008, end: 20181008
  13. GLUCOSE [Concomitant]
     Active Substance: DEXTROSE
     Dosage: 60 ML, UNK
     Route: 042
     Dates: start: 20181008, end: 20181008

REACTIONS (1)
  - Thrombosis [Recovered/Resolved]

NARRATIVE: CASE EVENT DATE: 20181213
